FAERS Safety Report 4827120-1 (Version None)
Quarter: 2005Q4

REPORT INFORMATION
  Report Type: 
  Country: None (occurrence: None)
  Receive Date: 20051114
  Receipt Date: 20051111
  Transmission Date: 20060501
  Serious: Yes (Other)
  Sender: FDA-Public Use
  Company Number: 2005JP002157

PATIENT
  Age: 61 Year
  Sex: Male

DRUGS (3)
  1. CEFAZOLIN [Suspect]
     Indication: DRUG USE FOR UNKNOWN INDICATION
     Route: 042
     Dates: start: 20051102, end: 20051103
  2. LANOXIN [Concomitant]
     Route: 048
     Dates: start: 20051027, end: 20051103
  3. CLARITIN [Concomitant]
     Route: 048
     Dates: start: 20051027, end: 20051103

REACTIONS (5)
  - CONDITION AGGRAVATED [None]
  - DIZZINESS [None]
  - ERYTHEMA [None]
  - SHOCK [None]
  - THIRST [None]
